FAERS Safety Report 7632222-0 (Version None)
Quarter: 2011Q3

REPORT INFORMATION
  Report Type: 
  Country: None (occurrence: None)
  Receive Date: 20110725
  Receipt Date: 20100716
  Transmission Date: 20111222
  Serious: No
  Sender: FDA-Public Use
  Company Number: US-BRISTOL-MYERS SQUIBB COMPANY-15160138

PATIENT
  Age: 69 Year
  Sex: Male

DRUGS (2)
  1. COUMADIN [Suspect]
     Indication: ATRIAL FIBRILLATION
     Route: 048
  2. NASACORT AQ [Suspect]
     Indication: HYPERSENSITIVITY
     Route: 045
     Dates: start: 20100501

REACTIONS (3)
  - RHINORRHOEA [None]
  - LACRIMATION INCREASED [None]
  - INTERNATIONAL NORMALISED RATIO INCREASED [None]
